FAERS Safety Report 7399445-X (Version None)
Quarter: 2011Q2

REPORT INFORMATION
  Report Type: 
  Country: None (occurrence: None)
  Receive Date: 20110407
  Receipt Date: 20110325
  Transmission Date: 20111010
  Serious: Yes (Other)
  Sender: FDA-Public Use
  Company Number: PHHY2011DE16448

PATIENT
  Sex: Male

DRUGS (1)
  1. ZOMETA [Suspect]
     Dosage: 4 MG, EVERY 4 WEEKS
     Route: 042

REACTIONS (4)
  - OSTEONECROSIS OF JAW [None]
  - METASTASES TO BONE [None]
  - TOOTH LOSS [None]
  - NEOPLASM MALIGNANT [None]
